FAERS Safety Report 10314361 (Version 2)
Quarter: 2014Q3

REPORT INFORMATION
  Report Type: Spontaneous
  Country: JP (occurrence: JP)
  Receive Date: 20140718
  Receipt Date: 20140718
  Transmission Date: 20150326
  Serious: Yes (Other)
  Sender: FDA-Public Use
  Company Number: JP-PFIZER INC-2014191527

PATIENT
  Age: 4 Year
  Sex: Female

DRUGS (5)
  1. MUCODYNE [Concomitant]
     Active Substance: CARBOCYSTEINE
     Route: 048
  2. ASVERIN (TIPEPIDINE HIBENZATE) [Concomitant]
     Active Substance: TIPEPIDINE HIBENZATE
     Indication: COUGH
     Route: 048
  3. ZITHROMAC [Suspect]
     Active Substance: AZITHROMYCIN DIHYDRATE
     Indication: NASOPHARYNGITIS
     Dosage: 100 MG, 1X/DAY
     Route: 048
     Dates: start: 20140707, end: 201407
  4. LEBENIN [Suspect]
     Active Substance: LACTOBACILLUS ACIDOPHILUS\STREPTOCOCCUS FAECAIS
     Indication: NASOPHARYNGITIS
     Dosage: 1 G, 1X/DAY
     Route: 048
  5. PERIACTIN [Concomitant]
     Active Substance: CYPROHEPTADINE HYDROCHLORIDE
     Route: 048

REACTIONS (2)
  - Simple partial seizures [Unknown]
  - Abnormal behaviour [Unknown]

NARRATIVE: CASE EVENT DATE: 20140707
